FAERS Safety Report 22144466 (Version 1)
Quarter: 2023Q1

REPORT INFORMATION
  Report Type: Spontaneous
  Country: GB (occurrence: GB)
  Receive Date: 20230328
  Receipt Date: 20230328
  Transmission Date: 20230418
  Serious: Yes (Other)
  Sender: FDA-Public Use
  Company Number: GB-MHRA-TPP30756113C8250453YC1653992421791

PATIENT
  Age: 74 Year
  Sex: Male
  Weight: 76 kg

DRUGS (2)
  1. FINASTERIDE [Suspect]
     Active Substance: FINASTERIDE
     Indication: Product used for unknown indication
     Dosage: 5 MILLIGRAM, ONCE A DAY
     Route: 065
     Dates: start: 20211223
  2. TAMSULOSIN HYDROCHLORIDE [Concomitant]
     Active Substance: TAMSULOSIN HYDROCHLORIDE
     Indication: Product used for unknown indication
     Dosage: 400 MICROGRAM, ONCE A DAY
     Route: 065
     Dates: start: 20210309

REACTIONS (1)
  - Depression suicidal [Recovered/Resolved]

NARRATIVE: CASE EVENT DATE: 20220301
